FAERS Safety Report 8240196-7 (Version None)
Quarter: 2012Q1

REPORT INFORMATION
  Report Type: 
  Country: None (occurrence: None)
  Receive Date: 20120328
  Receipt Date: 20120308
  Transmission Date: 20120608
  Serious: No
  Sender: FDA-Public Use
  Company Number: US-ROXANE LABORATORIES, INC.-2012-RO-00821RO

PATIENT
  Sex: Female

DRUGS (2)
  1. LOSARTAN POTASSIUM AND HYDROCHLOROTHIAZIDE [Suspect]
     Indication: HYPERTENSION
     Route: 048
  2. METOPROLOL SUCCINATE [Concomitant]
     Dosage: 25 MG

REACTIONS (4)
  - NAIL GROWTH ABNORMAL [None]
  - NAIL RIDGING [None]
  - ONYCHOCLASIS [None]
  - ALOPECIA [None]
